FAERS Safety Report 8803723 (Version 3)
Quarter: 2013Q1

REPORT INFORMATION
  Report Type: Spontaneous
  Country: US (occurrence: US)
  Receive Date: 20120923
  Receipt Date: 20130114
  Transmission Date: 20140127
  Serious: Yes (Other)
  Sender: FDA-Public Use
  Company Number: US-009507513-2012SP035805

PATIENT
  Sex: Female
  Weight: 53.52 kg

DRUGS (1)
  1. IMPLANON [Suspect]
     Indication: CONTRACEPTION
     Dosage: UNK
     Dates: start: 20110928

REACTIONS (5)
  - Breast cyst excision [Unknown]
  - Fibrocystic breast disease [Recovered/Resolved]
  - Menstruation irregular [Unknown]
  - Weight decreased [Unknown]
  - Breast cyst [Not Recovered/Not Resolved]
